FAERS Safety Report 9633945 (Version 2)
Quarter: 2013Q4

REPORT INFORMATION
  Report Type: Spontaneous
  Country: US (occurrence: US)
  Receive Date: 20131021
  Receipt Date: 20131114
  Transmission Date: 20140711
  Serious: No
  Sender: FDA-Public Use
  Company Number: US-009507513-1310USA008464

PATIENT
  Sex: Female
  Weight: 59.86 kg

DRUGS (2)
  1. CLARITIN REDITABS [Suspect]
     Indication: PARANASAL SINUS HYPERSECRETION
     Dosage: 10 MG, UNKNOWN
     Route: 048
  2. CLARITIN REDITABS [Suspect]
     Indication: COUGH

REACTIONS (5)
  - Circumstance or information capable of leading to medication error [Unknown]
  - Drug effect decreased [Unknown]
  - Off label use [Unknown]
  - Product packaging issue [Unknown]
  - Product lot number issue [Unknown]
